FAERS Safety Report 25384276 (Version 1)
Quarter: 2025Q2

REPORT INFORMATION
  Report Type: Spontaneous
  Country: JP (occurrence: JP)
  Receive Date: 20250602
  Receipt Date: 20250602
  Transmission Date: 20250717
  Serious: Yes (Other)
  Sender: ROCHE
  Company Number: JP-ROCHE-10000296675

PATIENT

DRUGS (3)
  1. ATEZOLIZUMAB [Suspect]
     Active Substance: ATEZOLIZUMAB
     Indication: Hepatocellular carcinoma
     Route: 065
  2. BEVACIZUMAB [Suspect]
     Active Substance: BEVACIZUMAB
     Indication: Hepatocellular carcinoma
     Route: 065
  3. LENVATINIB [Suspect]
     Active Substance: LENVATINIB
     Indication: Hepatocellular carcinoma
     Route: 065

REACTIONS (14)
  - Rash [Unknown]
  - Pruritus [Unknown]
  - Colitis [Unknown]
  - Diarrhoea [Unknown]
  - Hepatic function abnormal [Unknown]
  - Interstitial lung disease [Unknown]
  - Pyrexia [Unknown]
  - Thyroid disorder [Unknown]
  - Myositis [Unknown]
  - Pancreatitis [Unknown]
  - Amylase increased [Unknown]
  - Mouth ulceration [Unknown]
  - Adrenal insufficiency [Unknown]
  - Duodenal ulcer [Unknown]
